FAERS Safety Report 19453902 (Version 2)
Quarter: 2021Q4

REPORT INFORMATION
  Report Type: Report from Study
  Country: BR (occurrence: BR)
  Receive Date: 20210623
  Receipt Date: 20211123
  Transmission Date: 20220303
  Serious: Yes (Hospitalization, Other)
  Sender: FDA-Public Use
  Company Number: BR-TAKEDA-BR202031806

PATIENT
  Sex: Male
  Weight: 25 kg

DRUGS (2)
  1. HEMO-8R [Suspect]
     Active Substance: ANTIHEMOPHILIC FACTOR, HUMAN RECOMBINANT
     Indication: Factor VIII deficiency
     Dosage: 500 INTERNATIONAL UNIT, 3/WEEK
     Route: 065
     Dates: start: 20190912
  2. HEMO-8R [Suspect]
     Active Substance: ANTIHEMOPHILIC FACTOR, HUMAN RECOMBINANT
     Dosage: 1000 INTERNATIONAL UNIT, 3/WEEK
     Route: 042
     Dates: start: 2012

REACTIONS (8)
  - Gastrointestinal disorder [Unknown]
  - Gingival bleeding [Recovered/Resolved]
  - Agitation [Recovering/Resolving]
  - Mouth swelling [Recovered/Resolved]
  - Thyroid disorder [Unknown]
  - Sleep disorder [Unknown]
  - Feeding disorder [Unknown]
  - Loose tooth [Unknown]
